FAERS Safety Report 12390463 (Version 2)
Quarter: 2016Q2

REPORT INFORMATION
  Report Type: Report from Study
  Country: US (occurrence: US)
  Receive Date: 20160520
  Receipt Date: 20160622
  Transmission Date: 20160815
  Serious: Yes (Life-Threatening, Other)
  Sender: FDA-Public Use
  Company Number: US-009507513-1605USA005892

PATIENT

DRUGS (5)
  1. TEMODAR [Suspect]
     Active Substance: TEMOZOLOMIDE
     Dosage: UNK, 1 HOUR BEFORE IRINOTECAN ON DAYS 1 TO 5, CYCLES WERE REPEATED EVERY 21 DAYS
     Route: 048
  2. ALISERTIB [Suspect]
     Active Substance: ALISERTIB
     Dosage: PER DAY ON DAYS 1 TO 7 AFTER FASTING, CYCLES WERE REPEATED EVERY 21 DAYSUNK
     Route: 048
  3. TEMODAR [Suspect]
     Active Substance: TEMOZOLOMIDE
     Indication: NEUROBLASTOMA
     Dosage: 100 MG/M2, 1 HOUR BEFORE IRINOTECAN ON DAYS 1 TO 5, CYCLES WERE REPEATED EVERY 21 DAYS
     Route: 048
  4. IRINOTECAN HYDROCHLORIDE. [Suspect]
     Active Substance: IRINOTECAN HYDROCHLORIDE
     Indication: NEUROBLASTOMA
     Dosage: 50 MG/M2, OVER 60 MINUTES ON DAYS 1 TO 5, CYCLES WERE REPEATED EVERY 21 DAYS
     Route: 042
  5. ALISERTIB [Suspect]
     Active Substance: ALISERTIB
     Indication: NEUROBLASTOMA
     Dosage: 45, 60, AND 80 MG/M2 PER DAY ON DAYS 1 TO 7 AFTER FASTING, CYCLES WERE REPEATED EVERY 21 DAYS
     Route: 048

REACTIONS (1)
  - Toxicity to various agents [Unknown]
